FAERS Safety Report 21953102 (Version 4)
Quarter: 2024Q1

REPORT INFORMATION
  Report Type: Report from Study
  Country: US (occurrence: US)
  Receive Date: 20230204
  Receipt Date: 20240111
  Transmission Date: 20240410
  Serious: Yes (Death, Other)
  Sender: FDA-Public Use
  Company Number: US-002147023-NVSC2023US020612

PATIENT
  Sex: Male

DRUGS (3)
  1. MYFORTIC [Suspect]
     Active Substance: MYCOPHENOLATE SODIUM
     Indication: Product used for unknown indication
     Dosage: UNK
     Route: 065
  2. TAFINLAR [Suspect]
     Active Substance: DABRAFENIB MESYLATE
     Indication: Product used for unknown indication
     Dosage: UNK
     Route: 065
  3. MEKINIST [Suspect]
     Active Substance: TRAMETINIB DIMETHYL SULFOXIDE
     Indication: Product used for unknown indication
     Dosage: UNK
     Route: 065

REACTIONS (6)
  - Death [Fatal]
  - Neoplasm malignant [Unknown]
  - Mitral valve incompetence [Unknown]
  - Pulmonary fibrosis [Unknown]
  - Sciatica [Unknown]
  - Hypertension [Unknown]
